FAERS Safety Report 16860234 (Version 13)
Quarter: 2021Q3

REPORT INFORMATION
  Report Type: Spontaneous
  Country: CA (occurrence: CA)
  Receive Date: 20190927
  Receipt Date: 20210825
  Transmission Date: 20211014
  Serious: Yes (Hospitalization, Other)
  Sender: FDA-Public Use
  Company Number: CA-CELLTRION INC.-2019CA018817

PATIENT

DRUGS (13)
  1. INFLECTRA [Suspect]
     Active Substance: INFLIXIMAB-DYYB
     Dosage: 300 MG EVERY 8 WEEKS
     Route: 042
     Dates: start: 20181108
  2. INFLECTRA [Suspect]
     Active Substance: INFLIXIMAB-DYYB
     Dosage: 7 MG/KG, EVERY 6 WEEKS
     Route: 042
     Dates: start: 20210315
  3. INFLECTRA [Suspect]
     Active Substance: INFLIXIMAB-DYYB
     Indication: CROHN^S DISEASE
     Dosage: 300 MG, AT 0, 2, 6, EVERY 8 WEEKS
     Route: 042
     Dates: start: 20181023
  4. INFLECTRA [Suspect]
     Active Substance: INFLIXIMAB-DYYB
     Dosage: 7 MG/KG, EVERY 6 WEEKS
     Route: 042
     Dates: start: 20200501
  5. INFLECTRA [Suspect]
     Active Substance: INFLIXIMAB-DYYB
     Dosage: 7 MG/KG EVERY 6 WEEKS
     Route: 042
     Dates: start: 20200904
  6. INFLECTRA [Suspect]
     Active Substance: INFLIXIMAB-DYYB
     Dosage: 7 MG/KG, EVERY 6 WEEKS
     Route: 042
     Dates: start: 20201127
  7. INFLECTRA [Suspect]
     Active Substance: INFLIXIMAB-DYYB
     Dosage: 300 MG, EVERY 8 WEEKS
     Route: 042
     Dates: start: 20210507, end: 20210507
  8. INFLECTRA [Suspect]
     Active Substance: INFLIXIMAB-DYYB
     Dosage: 300 MG, AT 0, 2, 6, EVERY 8 WEEKS
     Route: 042
     Dates: start: 20190925
  9. INFLECTRA [Suspect]
     Active Substance: INFLIXIMAB-DYYB
     Dosage: 300 MG, EVERY 8 WEEKS
     Route: 042
     Dates: start: 20191223
  10. INFLECTRA [Suspect]
     Active Substance: INFLIXIMAB-DYYB
     Dosage: 300 MG, AT 0, 2, 6, EVERY 8 WEEKS
     Route: 042
     Dates: start: 20190716
  11. INFLECTRA [Suspect]
     Active Substance: INFLIXIMAB-DYYB
     Dosage: 7 MG/KG, EVERY 6 WEEKS
     Route: 042
     Dates: start: 20200904
  12. INFLECTRA [Suspect]
     Active Substance: INFLIXIMAB-DYYB
     Dosage: 7 MG/KG, EVERY 6 WEEKS
     Route: 042
     Dates: start: 20210108
  13. INFLECTRA [Suspect]
     Active Substance: INFLIXIMAB-DYYB
     Dosage: 7 MG/KG, EVERY 8 WEEKS
     Route: 042
     Dates: start: 20210315, end: 20210315

REACTIONS (11)
  - Vaginal fistula [Unknown]
  - Vaginal cyst [Unknown]
  - Eczema [Not Recovered/Not Resolved]
  - Skin disorder [Unknown]
  - Vaginal infection [Unknown]
  - Infection [Not Recovered/Not Resolved]
  - Skin exfoliation [Unknown]
  - Off label use [Unknown]
  - Intentional product use issue [Unknown]
  - Hyperaesthesia [Unknown]
  - Off label use [Unknown]

NARRATIVE: CASE EVENT DATE: 20181023
